FAERS Safety Report 12164715 (Version 1)
Quarter: 2016Q1

REPORT INFORMATION
  Report Type: Report from Study
  Country: US (occurrence: US)
  Receive Date: 20160309
  Receipt Date: 20160309
  Transmission Date: 20160526
  Serious: Yes (Hospitalization)
  Sender: FDA-Public Use
  Company Number: US-TEVA-641740USA

PATIENT
  Age: 39 Year
  Sex: Male
  Weight: 84 kg

DRUGS (8)
  1. FUROSEMIDE. [Suspect]
     Active Substance: FUROSEMIDE
     Indication: CARDIOMYOPATHY
     Dosage: 40 MILLIGRAM DAILY;
     Route: 048
     Dates: start: 2006
  2. WARFARIN [Concomitant]
     Active Substance: WARFARIN
     Indication: CARDIOMYOPATHY
     Dosage: 1.5 MILLIGRAM DAILY;
     Route: 048
     Dates: start: 201509
  3. CARVEDILOL. [Suspect]
     Active Substance: CARVEDILOL
     Indication: CARDIOMYOPATHY
     Dosage: 50 MILLIGRAM DAILY;
     Route: 048
     Dates: start: 20150415
  4. EPLERENONE. [Concomitant]
     Active Substance: EPLERENONE
     Indication: CARDIOMYOPATHY
     Dosage: 25 MILLIGRAM DAILY;
     Route: 048
     Dates: start: 20150707
  5. LISINOPRIL. [Suspect]
     Active Substance: LISINOPRIL
     Indication: CARDIOMYOPATHY
     Dosage: 10 MILLIGRAM DAILY;
     Route: 048
     Dates: start: 201507
  6. ZOLPIDEM [Concomitant]
     Active Substance: ZOLPIDEM\ZOLPIDEM TARTRATE
     Indication: ANXIETY
     Dosage: 10 MILLIGRAM DAILY; -DEC-2014
     Route: 048
  7. CEP-41750 [Suspect]
     Active Substance: INVESTIGATIONAL PRODUCT
     Indication: CARDIAC FAILURE CHRONIC
     Dosage: CEP-41750 VS PLACEBO
     Route: 016
     Dates: start: 20150601, end: 20150601
  8. AMIODARONE [Concomitant]
     Active Substance: AMIODARONE
     Indication: VENTRICULAR TACHYARRHYTHMIA
     Dosage: 300 MILLIGRAM DAILY;
     Route: 048
     Dates: start: 201412

REACTIONS (1)
  - Syncope [Recovered/Resolved]

NARRATIVE: CASE EVENT DATE: 20160219
